FAERS Safety Report 13520471 (Version 4)
Quarter: 2020Q1

REPORT INFORMATION
  Report Type: Report from Study
  Country: BR (occurrence: BR)
  Receive Date: 20170508
  Receipt Date: 20200224
  Transmission Date: 20200409
  Serious: Yes (Hospitalization, Other)
  Sender: FDA-Public Use
  Company Number: BR-BRISTOL-MYERS SQUIBB COMPANY-BMS-2017-028822

PATIENT
  Age: 52 Year
  Sex: Female

DRUGS (1)
  1. ABATACEPT [Suspect]
     Active Substance: ABATACEPT
     Indication: RHEUMATOID ARTHRITIS
     Dosage: 750 MILLIGRAM ( THREE 250 MG VIALS), QMO
     Route: 042
     Dates: start: 20170105

REACTIONS (3)
  - Foot operation [Unknown]
  - Pneumonia [Unknown]
  - Localised infection [Unknown]

NARRATIVE: CASE EVENT DATE: 20170404
